FAERS Safety Report 10306337 (Version 2)
Quarter: 2014Q3

REPORT INFORMATION
  Report Type: Spontaneous
  Country: US (occurrence: US)
  Receive Date: 20140715
  Receipt Date: 20140905
  Transmission Date: 20150326
  Serious: Yes (Hospitalization, Other)
  Sender: FDA-Public Use
  Company Number: US-PFIZER INC-2014195689

PATIENT
  Age: 86 Year
  Sex: Male
  Weight: 81.63 kg

DRUGS (2)
  1. LIPITOR [Suspect]
     Active Substance: ATORVASTATIN CALCIUM
     Indication: BLOOD CHOLESTEROL INCREASED
     Dosage: 40 MG, DAILY
     Route: 048
     Dates: end: 201409
  2. DETROL LA [Suspect]
     Active Substance: TOLTERODINE TARTRATE
     Indication: POLYURIA
     Dosage: 2 MG, 1X/DAY
     Route: 048

REACTIONS (3)
  - Cerebrovascular accident [Not Recovered/Not Resolved]
  - Paralysis [Unknown]
  - Pain [Unknown]

NARRATIVE: CASE EVENT DATE: 2014
